FAERS Safety Report 8770086 (Version 1)
Quarter: 2012Q4

REPORT INFORMATION
  Report Type: Report from Study
  Country: CA (occurrence: CA)
  Receive Date: 20120906
  Receipt Date: 20120906
  Transmission Date: 20130627
  Serious: Yes (Hospitalization)
  Sender: FDA-Public Use
  Company Number: CA-JNJFOC-20120813633

PATIENT
  Sex: Male
  Weight: 100 kg

DRUGS (3)
  1. REMICADE [Suspect]
     Indication: CROHN^S DISEASE
     Route: 042
     Dates: start: 20080209
  2. LOSEC [Concomitant]
     Route: 065
  3. PENTASA [Concomitant]
     Route: 065

REACTIONS (1)
  - Muscle rupture [Recovering/Resolving]
